FAERS Safety Report 13363577 (Version 1)
Quarter: 2017Q1

REPORT INFORMATION
  Report Type: Spontaneous
  Country: FI (occurrence: FI)
  Receive Date: 20170323
  Receipt Date: 20170323
  Transmission Date: 20170429
  Serious: Yes (Other)
  Sender: FDA-Public Use
  Company Number: FI-SEPTODONT-201703916

PATIENT
  Age: 51 Year
  Sex: Female

DRUGS (2)
  1. DESLORATADINE. [Concomitant]
     Active Substance: DESLORATADINE
     Indication: PRODUCT USED FOR UNKNOWN INDICATION
     Route: 048
  2. SCANDONEST 30 MG/ML [Suspect]
     Active Substance: MEPIVACAINE HYDROCHLORIDE
     Indication: DENTAL LOCAL ANAESTHESIA
     Route: 004
     Dates: start: 20161227, end: 20161227

REACTIONS (2)
  - Angioedema [Recovered/Resolved]
  - Face oedema [Recovered/Resolved]
